FAERS Safety Report 15313210 (Version 2)
Quarter: 2018Q3

REPORT INFORMATION
  Report Type: Spontaneous
  Country: BR (occurrence: BR)
  Receive Date: 20180823
  Receipt Date: 20180904
  Transmission Date: 20181010
  Serious: Yes (Hospitalization)
  Sender: FDA-Public Use
  Company Number: BR-ALLERGAN-1841209US

PATIENT
  Sex: Female

DRUGS (11)
  1. BORAGO OFFICINALIS [Concomitant]
     Indication: BREAST DYSPLASIA
     Dosage: 900 MG, QD
     Route: 048
     Dates: start: 201806
  2. OMEPRAZOLE. [Concomitant]
     Active Substance: OMEPRAZOLE
     Indication: ABDOMINAL PAIN UPPER
     Dosage: 20 MG, OCCASIONALLY
     Route: 048
     Dates: start: 201808
  3. METAMIZOLE [Concomitant]
     Active Substance: METAMIZOLE
     Indication: PAIN
     Dosage: 500 MG, OCCASIONALLY
     Route: 048
  4. ACTONEL [Suspect]
     Active Substance: RISEDRONATE SODIUM
     Indication: OSTEOPOROSIS
     Dosage: 150 MG, Q MONTH
     Route: 048
     Dates: start: 20180110, end: 20180510
  5. CALCIUM [Concomitant]
     Active Substance: CALCIUM
     Indication: BONE DISORDER
     Dosage: 500 MG, QD
     Route: 048
     Dates: start: 201801
  6. DIOVAN [Concomitant]
     Active Substance: VALSARTAN
     Indication: HYPERTENSION
     Dosage: 160 MG, QD
     Route: 048
  7. GLIFAGE [Concomitant]
     Active Substance: METFORMIN HYDROCHLORIDE
     Indication: GLUCOSE TOLERANCE IMPAIRED
     Dosage: 500 MG, PRN (EVERY OTHER DAY)
     Route: 048
     Dates: start: 2013
  8. ALENDRONATE SODIUM. [Concomitant]
     Active Substance: ALENDRONATE SODIUM
     Indication: OSTEOPOROSIS
     Dosage: 70 MG, Q WEEK
     Route: 048
     Dates: start: 201806
  9. IBUPROFEN. [Concomitant]
     Active Substance: IBUPROFEN
     Indication: PAIN
     Dosage: 300 MG, OCCASIONALLY
     Route: 048
  10. LUFTAL [Concomitant]
     Active Substance: DIMETHICONE
     Indication: ABDOMINAL DISTENSION
     Dosage: 125 MG, Q4HR
     Route: 048
     Dates: end: 20180809
  11. INDAPEN [Concomitant]
     Active Substance: INDAPAMIDE
     Indication: DIURETIC THERAPY
     Dosage: 1.5 MG, QD
     Route: 048
     Dates: start: 2010

REACTIONS (10)
  - Osteoporosis [Unknown]
  - Eating disorder [Unknown]
  - Abdominal discomfort [Recovered/Resolved]
  - Dehydration [Recovered/Resolved]
  - Depression [Unknown]
  - Diarrhoea [Recovered/Resolved]
  - Breast dysplasia [Unknown]
  - Abdominal pain [Recovered/Resolved]
  - Adverse event [Unknown]
  - Vomiting [Recovered/Resolved]

NARRATIVE: CASE EVENT DATE: 20180110
